FAERS Safety Report 6699943-8 (Version None)
Quarter: 2010Q2

REPORT INFORMATION
  Report Type: 
  Country: None (occurrence: None)
  Receive Date: 20100428
  Receipt Date: 20100415
  Transmission Date: 20101027
  Serious: Yes (Hospitalization)
  Sender: FDA-Public Use
  Company Number: PHHY2010CA24390

PATIENT
  Sex: Male

DRUGS (2)
  1. CLOZARIL [Suspect]
     Dosage: UNK
     Dates: start: 20080506
  2. CLOZARIL [Suspect]
     Dosage: UNK
     Dates: start: 20100414

REACTIONS (1)
  - CHOLEDOCHECTOMY [None]
